FAERS Safety Report 8023120-1 (Version None)
Quarter: 2012Q1

REPORT INFORMATION
  Report Type: 
  Country: None (occurrence: None)
  Receive Date: 20120104
  Receipt Date: 20111229
  Transmission Date: 20120608
  Serious: Yes (Other)
  Sender: FDA-Public Use
  Company Number: US-AMGEN-USASP2011069544

PATIENT
  Age: 50 Year
  Sex: Female

DRUGS (5)
  1. ACTEMRA [Concomitant]
  2. RITUXAN [Concomitant]
  3. ORENCIA [Concomitant]
  4. ENBREL [Suspect]
     Dosage: UNK
     Dates: end: 20080101
  5. ENBREL [Suspect]
     Indication: RHEUMATOID ARTHRITIS
     Dosage: 50 MG, QWK
     Dates: start: 20111101

REACTIONS (5)
  - RHEUMATOID ARTHRITIS [None]
  - ANAPHYLACTIC SHOCK [None]
  - DRUG INEFFECTIVE [None]
  - INJECTION SITE PAIN [None]
  - HYPOAESTHESIA [None]
